FAERS Safety Report 6375198-9 (Version None)
Quarter: 2009Q3

REPORT INFORMATION
  Report Type: 
  Country: None (occurrence: None)
  Receive Date: 20090921
  Receipt Date: 20090921
  Transmission Date: 20100115
  Serious: Yes (Hospitalization)
  Sender: FDA-Public Use
  Company Number: None

PATIENT
  Sex: Female
  Weight: 96.82 kg

DRUGS (4)
  1. CISPLATIN [Suspect]
     Dosage: 98 MG
  2. DOXORUBICIN HCL [Suspect]
     Dosage: 88 MG
  3. TAXOL [Suspect]
     Dosage: 98 MG
  4. NEULASTA [Suspect]
     Dosage: 6 MG

REACTIONS (4)
  - DEHYDRATION [None]
  - DIARRHOEA [None]
  - NAUSEA [None]
  - VOMITING [None]
